FAERS Safety Report 25948300 (Version 1)
Quarter: 2025Q4

REPORT INFORMATION
  Report Type: Spontaneous
  Country: US (occurrence: US)
  Receive Date: 20251022
  Receipt Date: 20251022
  Transmission Date: 20260117
  Serious: Yes (Death, Other)
  Sender: PFIZER
  Company Number: US-PFIZER INC-202500207622

PATIENT
  Sex: Female

DRUGS (2)
  1. ELREXFIO [Suspect]
     Active Substance: ELRANATAMAB-BCMM
     Indication: Neoplasm malignant
     Dosage: LOADING DOSE (IN THE HOSPITAL)
  2. ELREXFIO [Suspect]
     Active Substance: ELRANATAMAB-BCMM
     Dosage: UNK
     Dates: start: 20250704

REACTIONS (1)
  - Malignant neoplasm progression [Fatal]
